FAERS Safety Report 20066852 (Version 4)
Quarter: 2022Q1

REPORT INFORMATION
  Report Type: Report from Study
  Country: US (occurrence: US)
  Receive Date: 20211115
  Receipt Date: 20220309
  Transmission Date: 20220424
  Serious: Yes (Other)
  Sender: FDA-Public Use
  Company Number: US-ABBVIE-21K-163-4159843-00

PATIENT
  Sex: Female

DRUGS (2)
  1. HUMIRA [Suspect]
     Active Substance: ADALIMUMAB
     Indication: Psoriatic arthropathy
     Dosage: CITRATE FREE
     Route: 058
     Dates: end: 20211026
  2. HUMIRA [Suspect]
     Active Substance: ADALIMUMAB
     Indication: Psoriasis

REACTIONS (9)
  - Dysphagia [Recovered/Resolved]
  - Paranasal sinus hypersecretion [Unknown]
  - Oesophageal disorder [Unknown]
  - Pharyngeal disorder [Unknown]
  - Sneezing [Unknown]
  - Rash [Unknown]
  - Drug hypersensitivity [Unknown]
  - Dysphagia [Unknown]
  - Therapeutic product effect incomplete [Unknown]
